FAERS Safety Report 12936449 (Version 1)
Quarter: 2016Q4

REPORT INFORMATION
  Report Type: Spontaneous
  Country: HU (occurrence: HU)
  Receive Date: 20161114
  Receipt Date: 20161114
  Transmission Date: 20170207
  Serious: Yes (Other)
  Sender: FDA-Public Use
  Company Number: HU-ROCHE-1853897

PATIENT
  Age: 66 Year
  Sex: Male

DRUGS (1)
  1. ERIVEDGE [Suspect]
     Active Substance: VISMODEGIB
     Indication: BASAL CELL CARCINOMA
     Dosage: 1X1 CAPSULE
     Route: 048
     Dates: start: 201509

REACTIONS (2)
  - Tachycardia [Recovered/Resolved]
  - Cardiac failure [Recovered/Resolved]
